FAERS Safety Report 8017233-8 (Version None)
Quarter: 2012Q1

REPORT INFORMATION
  Report Type: 
  Country: None (occurrence: None)
  Receive Date: 20120102
  Receipt Date: 20111225
  Transmission Date: 20120608
  Serious: Yes (Other)
  Sender: FDA-Public Use
  Company Number: PHHY2011IL112764

PATIENT
  Age: 15 Year
  Sex: Female
  Weight: 50 kg

DRUGS (1)
  1. RITALIN LA [Suspect]
     Dosage: UNK UKN, QD
     Route: 048

REACTIONS (2)
  - DEPRESSION [None]
  - WEIGHT DECREASED [None]
